FAERS Safety Report 5645701-2 (Version None)
Quarter: 2008Q1

REPORT INFORMATION
  Report Type: 
  Country: None (occurrence: None)
  Receive Date: 20080229
  Receipt Date: 20080219
  Transmission Date: 20080703
  Serious: Yes (Other)
  Sender: FDA-Public Use
  Company Number: US-PFIZER INC-2007041288

PATIENT
  Sex: Male
  Weight: 111.1 kg

DRUGS (4)
  1. VIAGRA [Suspect]
     Indication: ERECTILE DYSFUNCTION
  2. LEXAPRO [Concomitant]
  3. ZOLOFT [Concomitant]
  4. ASPIRIN [Concomitant]

REACTIONS (2)
  - BLINDNESS [None]
  - OPTIC ISCHAEMIC NEUROPATHY [None]
